FAERS Safety Report 13183957 (Version 2)
Quarter: 2017Q2

REPORT INFORMATION
  Report Type: Report from Study
  Country: JP (occurrence: JP)
  Receive Date: 20170203
  Receipt Date: 20170502
  Transmission Date: 20170830
  Serious: Yes (Other)
  Sender: FDA-Public Use
  Company Number: JP-SHIRE-JP201609052AA

PATIENT
  Age: 67 Year
  Sex: Female

DRUGS (5)
  1. 422 (ANAGRELIDE) [Suspect]
     Active Substance: ANAGRELIDE
     Indication: MYELOFIBROSIS
     Dosage: 1 MG/DAY
     Route: 048
     Dates: start: 20160115, end: 20160128
  2. 422 (ANAGRELIDE) [Suspect]
     Active Substance: ANAGRELIDE
     Dosage: 0.5 MG/DAY
     Route: 048
     Dates: start: 20161129, end: 20161220
  3. 422 (ANAGRELIDE) [Suspect]
     Active Substance: ANAGRELIDE
     Dosage: 1 MG/DAY
     Route: 048
     Dates: start: 20160212, end: 20160711
  4. 422 (ANAGRELIDE) [Suspect]
     Active Substance: ANAGRELIDE
     Dosage: 1 MG/DAY
     Route: 048
     Dates: start: 20161221
  5. 422 (ANAGRELIDE) [Suspect]
     Active Substance: ANAGRELIDE
     Dosage: 0.5 MG/DAY
     Route: 048
     Dates: start: 20160129, end: 20160211

REACTIONS (7)
  - Palpitations [Recovering/Resolving]
  - Pulmonary hypertension [Recovering/Resolving]
  - Atrial fibrillation [Recovering/Resolving]
  - Platelet count increased [Recovering/Resolving]
  - Cough [Recovered/Resolved]
  - Palpitations [Recovering/Resolving]
  - Basedow^s disease [Recovering/Resolving]

NARRATIVE: CASE EVENT DATE: 20160129
